FAERS Safety Report 25502630 (Version 1)
Quarter: 2025Q3

REPORT INFORMATION
  Report Type: Spontaneous
  Country: US (occurrence: US)
  Receive Date: 20250702
  Receipt Date: 20250702
  Transmission Date: 20251021
  Serious: Yes (Hospitalization)
  Sender: TEVA
  Company Number: US-TEVA-VS-3345181

PATIENT
  Age: 43 Year
  Sex: Female

DRUGS (4)
  1. PREDNISONE [Suspect]
     Active Substance: PREDNISONE
     Indication: Retinal vascular disorder
     Route: 048
  2. DEXAMETHASONE [Suspect]
     Active Substance: DEXAMETHASONE
     Indication: Retinal vascular disorder
     Route: 050
  3. AVACINCAPTAD PEGOL SODIUM [Concomitant]
     Active Substance: AVACINCAPTAD PEGOL SODIUM
     Indication: Stargardt^s disease
     Route: 050
  4. PEGCETACOPLAN [Suspect]
     Active Substance: PEGCETACOPLAN
     Indication: Stargardt^s disease
     Route: 065

REACTIONS (3)
  - Retinal vascular disorder [Unknown]
  - Choroiditis [Unknown]
  - Drug ineffective [Unknown]
